FAERS Safety Report 5392393-6 (Version None)
Quarter: 2007Q3

REPORT INFORMATION
  Report Type: 
  Country: None (occurrence: None)
  Receive Date: 20070720
  Receipt Date: 20050427
  Transmission Date: 20080115
  Serious: Yes (Death)
  Sender: FDA-Public Use
  Company Number: B0379267A

PATIENT
  Age: 66 Year
  Sex: Male

DRUGS (8)
  1. TOPOTECAN [Suspect]
     Dosage: 1.2MGM2 PER DAY
     Route: 042
  2. ETOPOSIDE [Concomitant]
  3. METOCLOPRAMIDE [Concomitant]
  4. DEXAMETHASONE 0.5MG TAB [Concomitant]
  5. ONDANSETRON [Concomitant]
  6. AMINO ACIDS [Concomitant]
  7. CODEIN [Concomitant]
  8. MEFENAMIC ACID [Concomitant]

REACTIONS (5)
  - ANAEMIA [None]
  - HEPATIC ENZYME INCREASED [None]
  - LEUKOPENIA [None]
  - NEUTROPENIA [None]
  - THROMBOCYTOPENIA [None]
